FAERS Safety Report 15362249 (Version 4)
Quarter: 2019Q4

REPORT INFORMATION
  Report Type: Spontaneous
  Country: FI (occurrence: FI)
  Receive Date: 20180907
  Receipt Date: 20191018
  Transmission Date: 20200122
  Serious: Yes (Other)
  Sender: FDA-Public Use
  Company Number: FI-PFIZER INC-2018353409

PATIENT
  Age: 51 Year
  Sex: Female
  Weight: 85 kg

DRUGS (21)
  1. XELJANZ [Suspect]
     Active Substance: TOFACITINIB CITRATE
     Indication: RHEUMATOID ARTHRITIS
     Dosage: 5 MG, 2X/DAY
     Route: 048
     Dates: start: 20180405, end: 20180829
  2. PREDNISOLON [Concomitant]
     Active Substance: PREDNISOLONE
     Indication: RHEUMATOID ARTHRITIS
     Dosage: 5 MG, (MAX 10 MG/DAY) CYCLIC DURING ACTIVATION OF RHEUMATOID ARTHRITIS
     Route: 048
  3. FOLIC ACID. [Concomitant]
     Active Substance: FOLIC ACID
     Dosage: 5 MG, WEEKLY ON TUESDAYS
     Route: 048
  4. IMODIUM [Concomitant]
     Active Substance: LOPERAMIDE HYDROCHLORIDE
     Dosage: 2 MG, AS NEEDED (MAX 6 MG/DAY)
     Route: 048
  5. TRIPTYL [Concomitant]
     Active Substance: AMITRIPTYLINE HYDROCHLORIDE
     Dosage: 25 MG, 1X/DAY
     Route: 048
  6. PANACOD [Concomitant]
     Active Substance: ACETAMINOPHEN\CODEINE PHOSPHATE
     Dosage: 1 DF, UNK
     Route: 048
  7. BURANA [Concomitant]
     Active Substance: IBUPROFEN
     Dosage: 400 MG, AS NEEDED (MAX 1200 MG/DAY)
     Route: 048
  8. OXIKLORIN [Concomitant]
     Active Substance: HYDROXYCHLOROQUINE SULFATE
     Indication: RHEUMATOID ARTHRITIS
     Dosage: 300 MG, 1X/DAY
     Route: 048
  9. PANADOL NOVUM [Concomitant]
     Dosage: 500 MG, AS NEEDED (MAX 3000 MG/DAY)
     Route: 048
  10. CORTISONE [Concomitant]
     Active Substance: CORTISONE
  11. TREXAN (METHOTREXATE) [Concomitant]
     Active Substance: METHOTREXATE SODIUM
     Indication: RHEUMATOID ARTHRITIS
     Dosage: 20 MG, WEEKLY
     Route: 048
     Dates: start: 20180607, end: 20180824
  12. CALCICHEW D3 FORTE SITRUUNA [Concomitant]
     Dosage: 2 DF, 1X/DAY
     Route: 048
  13. BRINTELLIX [Concomitant]
     Active Substance: VORTIOXETINE HYDROBROMIDE
     Dosage: 20 MG, 1X/DAY
     Route: 048
  14. STELLA [ZOLPIDEM TARTRATE] [Concomitant]
     Dosage: 10 MG, 1X/DAY
     Route: 048
  15. PREDNISOLON [Concomitant]
     Active Substance: PREDNISOLONE
     Indication: RHEUMATOID ARTHRITIS
     Dosage: 5 MG, 1X/DAY (10 MG AS NEEDED)
     Route: 048
  16. METOJECT [Concomitant]
     Active Substance: METHOTREXATE SODIUM
     Indication: RHEUMATOID ARTHRITIS
     Dosage: 25 MG, WEEKLY
     Route: 058
     Dates: end: 201806
  17. ARCOXIA [Concomitant]
     Active Substance: ETORICOXIB
     Dosage: 90 MG, AS NEEDED (MAX 90MG/DAY)
     Route: 048
  18. XELJANZ [Suspect]
     Active Substance: TOFACITINIB CITRATE
     Dosage: 5 MG, 2X/DAY
     Route: 048
     Dates: start: 20180906, end: 20180928
  19. SOMAC [Concomitant]
     Active Substance: PANTOPRAZOLE SODIUM
     Dosage: 40 MG, AS NEEDED (MAX 40 MG/DAY)
     Route: 048
  20. ORUDIS [Concomitant]
     Active Substance: KETOPROFEN
     Dosage: 2.5 %, AS NEEDED 1 X DAY (MAX 2 X DAY)
     Route: 061
  21. SIRDALUD [Concomitant]
     Active Substance: TIZANIDINE
     Dosage: 2 MG, AS NEEDED (MAX 4 MG/DAY)
     Route: 048

REACTIONS (3)
  - Staphylococcal abscess [Recovered/Resolved]
  - Folliculitis [Recovered/Resolved]
  - Pustule [Not Recovered/Not Resolved]

NARRATIVE: CASE EVENT DATE: 20180820
